FAERS Safety Report 18248050 (Version 1)
Quarter: 2020Q3

REPORT INFORMATION
  Report Type: Spontaneous
  Country: US (occurrence: US)
  Receive Date: 20200909
  Receipt Date: 20200909
  Transmission Date: 20201103
  Serious: No
  Sender: FDA-Public Use
  Company Number: US-PERRIGO-20US008494

PATIENT
  Age: 25 Year
  Sex: Female
  Weight: 56.69 kg

DRUGS (5)
  1. ALBUTEROL SULFATE. [Suspect]
     Active Substance: ALBUTEROL SULFATE
     Dosage: UNK, QD TO BID PRN
     Route: 055
     Dates: start: 2020, end: 202007
  2. ALBUTEROL SULFATE. [Suspect]
     Active Substance: ALBUTEROL SULFATE
     Dosage: 180 MCG, PRN
     Route: 055
     Dates: start: 20200611
  3. ALBUTEROL SULFATE. [Suspect]
     Active Substance: ALBUTEROL SULFATE
     Indication: ASTHMA
     Dosage: 180 MCGS, PRN
     Route: 055
     Dates: start: 20200528, end: 20200609
  4. ALBUTEROL SULFATE. [Suspect]
     Active Substance: ALBUTEROL SULFATE
     Dosage: UNK, SINGLE
     Route: 048
     Dates: start: 20200727, end: 20200727
  5. MONTELUKAST [Concomitant]
     Active Substance: MONTELUKAST SODIUM
     Indication: HYPERSENSITIVITY
     Dosage: UNKNOWN, UNKNOWN
     Route: 065

REACTIONS (4)
  - Accidental exposure to product [Recovered/Resolved]
  - Device delivery system issue [Recovered/Resolved]
  - Retching [Recovered/Resolved]
  - Underdose [Recovered/Resolved]

NARRATIVE: CASE EVENT DATE: 202006
